FAERS Safety Report 12236963 (Version 1)
Quarter: 2016Q2

REPORT INFORMATION
  Report Type: Spontaneous
  Country: US (occurrence: US)
  Receive Date: 20160405
  Receipt Date: 20160405
  Transmission Date: 20160815
  Serious: Yes (Other)
  Sender: FDA-Public Use
  Company Number: US-ALKEM-001553

PATIENT
  Age: 62 Year
  Sex: Male
  Weight: 113.4 kg

DRUGS (12)
  1. CODEINE PHOSPHATE/PARACETAMOL [Concomitant]
     Indication: ARTHRALGIA
     Dosage: TYLENOL 3 WITH CODEINE?300MG/5MG, 3-4 TIMES A DAY
  2. COUMADIN [Concomitant]
     Active Substance: WARFARIN SODIUM
     Indication: ANTICOAGULANT THERAPY
     Dates: start: 200809
  3. LISINOPRIL. [Concomitant]
     Active Substance: LISINOPRIL
     Indication: HEART RATE
     Dates: start: 200701
  4. GABAPENTIN. [Suspect]
     Active Substance: GABAPENTIN
     Indication: ARTHRALGIA
     Dosage: INITIALLY STARTED 300 MG 3 TIMES DAY FROM 28-JAN-2016, THEN INCREASED TO 600 MG ON 3-MAR-2016
     Dates: start: 20160303, end: 20160310
  5. TYLENOL [Concomitant]
     Active Substance: ACETAMINOPHEN
     Indication: ARTHRALGIA
     Dosage: 2-3 TIMES A DAY
     Dates: start: 20160307
  6. LIPITOR [Concomitant]
     Active Substance: ATORVASTATIN CALCIUM
     Indication: BLOOD CHOLESTEROL
     Dosage: STARTED 10 YEARS AGO
  7. METOPROLOL. [Concomitant]
     Active Substance: METOPROLOL
     Indication: HEART RATE
     Dates: start: 200701
  8. PANTOPRAZOLE [Concomitant]
     Active Substance: PANTOPRAZOLE SODIUM
     Indication: BARRETT^S OESOPHAGUS
     Dosage: STARTED 2 YEARS AGO AFTER HIS LAST COLONOSCOPY
  9. FLOMAX [Concomitant]
     Active Substance: TAMSULOSIN HYDROCHLORIDE
     Indication: URINE FLOW DECREASED
     Dosage: ONCE IN THE EVENING
     Dates: start: 2001
  10. BUPROPION XL [Concomitant]
     Active Substance: BUPROPION
     Indication: DEPRESSION
     Dates: start: 2001
  11. CORTISONE [Suspect]
     Active Substance: CORTISONE\HYDROCORTISONE
     Indication: ARTHRALGIA
     Dosage: GIVEN AT THE DOCTOR^S OFFICE?INJECTION TO RIGHT SHOULDER.?GETTING IT FROM 8 TO 9 YEARS
  12. DICLOXACILLIN [Concomitant]
     Active Substance: DICLOXACILLIN
     Indication: ABDOMINAL INFECTION
     Dates: start: 200909

REACTIONS (2)
  - Chest pain [Not Recovered/Not Resolved]
  - Off label use [Unknown]

NARRATIVE: CASE EVENT DATE: 20160308
